FAERS Safety Report 8912980 (Version 1)
Quarter: 2012Q4

REPORT INFORMATION
  Report Type: 
  Country: BE (occurrence: BE)
  Receive Date: 20121116
  Receipt Date: 20121116
  Transmission Date: 20130627
  Serious: Yes (Other)
  Sender: FDA-Public Use
  Company Number: BE-BRISTOL-MYERS SQUIBB COMPANY-17107459

PATIENT
  Sex: Female

DRUGS (2)
  1. REYATAZ [Suspect]
  2. VIRAMUNE [Suspect]

REACTIONS (1)
  - Aplastic anaemia [Unknown]
